FAERS Safety Report 8190370-3 (Version None)
Quarter: 2012Q1

REPORT INFORMATION
  Report Type: 
  Country: None (occurrence: None)
  Receive Date: 20120221
  Receipt Date: 20111220
  Transmission Date: 20120608
  Serious: No
  Sender: FDA-Public Use
  Company Number: 1000026503

PATIENT
  Age: 65 Year
  Sex: Male

DRUGS (3)
  1. VIIBRYD [Suspect]
     Indication: DEPRESSION
     Dosage: 40 MG (40 MG,1 IN 1 D),ORAL
     Route: 048
     Dates: start: 20110101, end: 20111201
  2. VIIBRYD [Suspect]
     Indication: DEPRESSION
     Dosage: 10 MG (10 MG,1 IN 1 D),ORAL  : 20 MG (20 MG,1 IN 1 D), ORAL
     Route: 048
     Dates: start: 20110101, end: 20110101
  3. VIIBRYD [Suspect]
     Indication: DEPRESSION
     Dosage: 10 MG (10 MG,1 IN 1 D),ORAL  : 20 MG (20 MG,1 IN 1 D), ORAL
     Route: 048
     Dates: start: 20110101, end: 20110101

REACTIONS (3)
  - DRY THROAT [None]
  - DYSPHONIA [None]
  - NIGHTMARE [None]
